FAERS Safety Report 5492406-7 (Version None)
Quarter: 2007Q4

REPORT INFORMATION
  Report Type: 
  Country: None (occurrence: None)
  Receive Date: 20071022
  Receipt Date: 20071011
  Transmission Date: 20080405
  Serious: Yes (Hospitalization, Disabling, Other)
  Sender: FDA-Public Use
  Company Number: KP-AMGEN-US238998

PATIENT
  Sex: Female

DRUGS (15)
  1. ARANESP [Suspect]
     Indication: DIALYSIS
     Route: 042
     Dates: start: 20050601, end: 20051201
  2. ARANESP [Suspect]
     Dates: start: 20060401
  3. EPOETIN ALFA [Suspect]
     Route: 058
     Dates: start: 20020101, end: 20030601
  4. RECORMON [Suspect]
     Dates: start: 20040501, end: 20050501
  5. RECORMON [Suspect]
     Dates: start: 20051201, end: 20060401
  6. AMPHOJEL [Concomitant]
  7. CALCITRIOL [Concomitant]
  8. CARVEDILOL [Concomitant]
  9. ENALAPRIL MALEATE [Concomitant]
  10. FOLATE SODIUM [Concomitant]
  11. AMLODIPINE [Concomitant]
  12. PYRIDOXINE HCL [Concomitant]
  13. THIAMINE [Concomitant]
  14. CALCIUM CARBONATE [Concomitant]
  15. SUCRALFATE [Concomitant]

REACTIONS (3)
  - ANTI-ERYTHROPOIETIN ANTIBODY POSITIVE [None]
  - APLASIA PURE RED CELL [None]
  - THERAPEUTIC RESPONSE DECREASED [None]
